FAERS Safety Report 20683251 (Version 2)
Quarter: 2022Q2

REPORT INFORMATION
  Report Type: Spontaneous
  Country: US (occurrence: US)
  Receive Date: 20220407
  Receipt Date: 20220428
  Transmission Date: 20220720
  Serious: Yes (Other)
  Sender: FDA-Public Use
  Company Number: US-MLMSERVICE-20220329-3454445-1

PATIENT
  Age: 48 Year
  Sex: Male

DRUGS (8)
  1. OXALIPLATIN [Suspect]
     Active Substance: OXALIPLATIN
     Indication: Mucinous adenocarcinoma of appendix
     Dosage: QCY (INFUSION)
     Route: 041
     Dates: start: 2014, end: 2014
  2. OXALIPLATIN [Suspect]
     Active Substance: OXALIPLATIN
     Indication: Metastases to peritoneum
  3. CAPECITABINE [Suspect]
     Active Substance: CAPECITABINE
     Indication: Mucinous adenocarcinoma of appendix
     Dosage: UNK UNK, QCY
     Route: 042
     Dates: start: 2014, end: 2014
  4. CAPECITABINE [Suspect]
     Active Substance: CAPECITABINE
     Indication: Metastases to peritoneum
  5. FLUOROURACIL [Suspect]
     Active Substance: FLUOROURACIL
     Indication: Metastases to peritoneum
     Dosage: QCY
     Route: 041
     Dates: start: 2014, end: 2014
  6. FLUOROURACIL [Suspect]
     Active Substance: FLUOROURACIL
     Indication: Mucinous adenocarcinoma of appendix
  7. LEUCOVORIN [Suspect]
     Active Substance: LEUCOVORIN
     Indication: Mucinous adenocarcinoma of appendix
     Dosage: UNK, QCY
     Route: 041
     Dates: start: 2014, end: 2014
  8. LEUCOVORIN [Suspect]
     Active Substance: LEUCOVORIN
     Indication: Metastases to peritoneum

REACTIONS (2)
  - Neuropathy peripheral [Unknown]
  - Atrial fibrillation [Unknown]

NARRATIVE: CASE EVENT DATE: 20140101
